FAERS Safety Report 18458090 (Version 3)
Quarter: 2020Q4

REPORT INFORMATION
  Report Type: Spontaneous
  Country: CA (occurrence: CA)
  Receive Date: 20201103
  Receipt Date: 20201116
  Transmission Date: 20210114
  Serious: Yes (Other)
  Sender: FDA-Public Use
  Company Number: CA-PFIZER INC-2020333498

PATIENT
  Age: 60 Year
  Sex: Female

DRUGS (5)
  1. METHOTREXATE. [Concomitant]
     Active Substance: METHOTREXATE
     Indication: RHEUMATOID ARTHRITIS
     Dosage: 25 MG, WEEKLY
     Dates: start: 2010
  2. XELJANZ [Suspect]
     Active Substance: TOFACITINIB CITRATE
     Indication: RHEUMATOID ARTHRITIS
     Dosage: 5MG, 2X/DAY
     Route: 048
     Dates: start: 20200812, end: 20201021
  3. PREDNISONE. [Concomitant]
     Active Substance: PREDNISONE
     Dosage: 7.5 MG, 1X/DAY
     Dates: start: 2010
  4. HYDROXYCHLOROQUINE [Concomitant]
     Active Substance: HYDROXYCHLOROQUINE
     Dosage: 200 MG, 1X/DAY
     Dates: start: 2010
  5. PREDNISONE. [Concomitant]
     Active Substance: PREDNISONE
     Dosage: 1ST WEEK 50MG, 2ND WEEK 45MG AND 3RD WEEK 40MG

REACTIONS (15)
  - Facial paralysis [Unknown]
  - Drug ineffective [Unknown]
  - Chills [Unknown]
  - Herpes zoster [Unknown]
  - Lip pain [Unknown]
  - Contusion [Unknown]
  - Headache [Not Recovered/Not Resolved]
  - Vision blurred [Unknown]
  - Dizziness [Unknown]
  - Paraesthesia oral [Unknown]
  - Weight increased [Unknown]
  - Nausea [Unknown]
  - Abdominal pain upper [Unknown]
  - Dry mouth [Unknown]
  - Chest pain [Unknown]
